FAERS Safety Report 8795489 (Version 2)
Quarter: 2018Q2

REPORT INFORMATION
  Report Type: Report from Study
  Country: ZA (occurrence: ZA)
  Receive Date: 20120917
  Receipt Date: 20180524
  Transmission Date: 20180711
  Serious: Yes (Death)
  Sender: FDA-Public Use
  Company Number: ZA-ROCHE-1130011

PATIENT
  Age: 63 Year
  Sex: Male

DRUGS (8)
  1. EPILIM [Concomitant]
     Active Substance: VALPROATE SODIUM
     Dosage: REPORTED AS EPILIM CR
     Route: 065
  2. LASIX [Concomitant]
     Active Substance: FUROSEMIDE
     Route: 065
  3. MIRCERA [Suspect]
     Active Substance: METHOXY POLYETHYLENE GLYCOL-EPOETIN BETA
     Route: 065
  4. MIRCERA [Suspect]
     Active Substance: METHOXY POLYETHYLENE GLYCOL-EPOETIN BETA
     Indication: NEPHROGENIC ANAEMIA
     Route: 058
     Dates: start: 201206
  5. 1-ALPHA [Concomitant]
     Active Substance: ALFACALCIDOL
     Route: 065
  6. TITRALAC [Concomitant]
     Active Substance: CALCIUM CARBONATE
     Route: 065
  7. CALTRATE [Concomitant]
     Active Substance: CALCIUM CARBONATE
     Route: 065
  8. MIRCERA [Suspect]
     Active Substance: METHOXY POLYETHYLENE GLYCOL-EPOETIN BETA
     Route: 065

REACTIONS (2)
  - Cardiac failure [Fatal]
  - Malaise [Unknown]

NARRATIVE: CASE EVENT DATE: 20120914
